FAERS Safety Report 16179289 (Version 1)
Quarter: 2019Q2

REPORT INFORMATION
  Report Type: Spontaneous
  Country: US (occurrence: US)
  Receive Date: 20190410
  Receipt Date: 20190410
  Transmission Date: 20190711
  Serious: No
  Sender: FDA-Public Use
  Company Number: US-009507513-1903USA013358

PATIENT
  Age: 40 Year
  Sex: Female
  Weight: 82.54 kg

DRUGS (1)
  1. NEXPLANON [Suspect]
     Active Substance: ETONOGESTREL
     Indication: CONTRACEPTION
     Dosage: LEFT (L) ARM, 1 DEVICE
     Route: 059
     Dates: start: 20160510, end: 20190328

REACTIONS (3)
  - Complication of device removal [Recovered/Resolved]
  - No adverse event [Unknown]
  - Device breakage [Recovered/Resolved]

NARRATIVE: CASE EVENT DATE: 20190328
